FAERS Safety Report 10214108 (Version 1)
Quarter: 2014Q2

REPORT INFORMATION
  Report Type: Spontaneous
  Country: FR (occurrence: None)
  Receive Date: 20140530
  Receipt Date: 20140530
  Transmission Date: 20141212
  Serious: Yes (Hospitalization)
  Sender: FDA-Public Use
  Company Number: 2357918

PATIENT
  Age: 47 Year
  Sex: Female

DRUGS (3)
  1. CARBOPLATIN [Suspect]
     Indication: LUNG CANCER METASTATIC
     Dosage: 4 COURSES, UNKNOWN, INTRAVENOUS (NOT OTHERWISE SPECIFIED)
     Route: 042
     Dates: start: 20140217, end: 20140409
  2. PEMETREXED [Suspect]
     Indication: LUNG CANCER METASTATIC
     Dosage: 715 MG MILLIGRAM(S), UNKNOWN, INTRAVENOUS (NOT OTHERWISE SPECIFIED)?
     Route: 042
     Dates: start: 20140122, end: 20140409
  3. CISPLATIN [Concomitant]

REACTIONS (8)
  - Renal failure acute [None]
  - Anaemia [None]
  - Neutropenia [None]
  - Thrombocytopenia [None]
  - Nausea [None]
  - Vomiting [None]
  - Blood potassium decreased [None]
  - Blood sodium decreased [None]
